FAERS Safety Report 4757087-6 (Version None)
Quarter: 2005Q3

REPORT INFORMATION
  Report Type: 
  Country: None (occurrence: None)
  Receive Date: 20050829
  Receipt Date: 20050819
  Transmission Date: 20060218
  Serious: Yes (Hospitalization, Other)
  Sender: FDA-Public Use
  Company Number: KII-2005-0018173

PATIENT
  Age: 52 Year
  Sex: Female

DRUGS (4)
  1. MORPHINE SULFATE [Suspect]
     Indication: PAIN
     Dosage: SEE TEXT, ORAL
     Route: 048
  2. CARISOPRODOL [Suspect]
     Dosage: ORAL
     Route: 048
  3. SSRT [Suspect]
     Dosage: ORAL
     Route: 048
  4. ASPIRIN [Suspect]
     Dosage: ORAL
     Route: 048

REACTIONS (22)
  - AGITATION [None]
  - ASPARTATE AMINOTRANSFERASE INCREASED [None]
  - BLOOD BICARBONATE DECREASED [None]
  - BLOOD CALCIUM DECREASED [None]
  - BLOOD CREATINE PHOSPHOKINASE INCREASED [None]
  - BLOOD PH DECREASED [None]
  - BLOOD PHOSPHORUS DECREASED [None]
  - CYANOSIS [None]
  - HAEMATOCRIT DECREASED [None]
  - HAEMOGLOBIN DECREASED [None]
  - HYPOTENSION [None]
  - INTENTIONAL MISUSE [None]
  - MENTAL STATUS CHANGES [None]
  - MYOGLOBIN BLOOD INCREASED [None]
  - OVERDOSE [None]
  - PLATELET COUNT DECREASED [None]
  - RESPIRATORY RATE INCREASED [None]
  - SINUS TACHYCARDIA [None]
  - SKIN DISCOLOURATION [None]
  - SOMNOLENCE [None]
  - SUICIDAL IDEATION [None]
  - TROPONIN INCREASED [None]
